FAERS Safety Report 9247637 (Version 1)
Quarter: 2013Q1

REPORT INFORMATION
  Report Type: Spontaneous
  Country: US (occurrence: None)
  Receive Date: 20121130
  Receipt Date: 20121130
  Transmission Date: 20140127
  Serious: Yes (Other)
  Sender: FDA-Public Use
  Company Number: 337772

PATIENT
  Age: 87 Year
  Sex: Male
  Weight: 80.7 kg

DRUGS (2)
  1. NOVOLOG MIX 70/30 FLEXPEN (INSULIN ASPART) SUSPENSION FOR INJECTION, 100U/ML [Suspect]
     Indication: TYPE 2 DIABETES MELLITUS
     Dosage: UNK, SUBCUTANEOUS
     Route: 058
     Dates: start: 201106
  2. PLAVIX [Concomitant]

REACTIONS (1)
  - Blood glucose decreased [None]
